FAERS Safety Report 6419151-5 (Version None)
Quarter: 2009Q4

REPORT INFORMATION
  Report Type: 
  Country: None (occurrence: None)
  Receive Date: 20091029
  Receipt Date: 20091021
  Transmission Date: 20100525
  Serious: Yes (Death)
  Sender: FDA-Public Use
  Company Number: US-ROCHE-663864

PATIENT

DRUGS (21)
  1. BONIVA [Suspect]
     Indication: OSTEOPOROSIS
     Route: 065
  2. NEXIUM [Concomitant]
  3. MUCINEX [Concomitant]
  4. LORAZEPAM [Concomitant]
  5. ZYPREXA [Concomitant]
  6. TORSEMIDE [Concomitant]
  7. COMBIVENT [Concomitant]
  8. URECHOLINE [Concomitant]
  9. CARDIZEM [Concomitant]
  10. DOXAZOSIN MESYLATE [Concomitant]
  11. FLOMAX [Concomitant]
  12. LISINOPRIL [Concomitant]
  13. SINGULAIR [Concomitant]
  14. PERCOCET [Concomitant]
  15. DEMADEX [Concomitant]
  16. AMBIEN [Concomitant]
  17. CALCIUM [Concomitant]
  18. FLOVENT [Concomitant]
  19. FLEXERIL [Concomitant]
  20. DEPAKOTE [Concomitant]
  21. PREDNISONE TAB [Concomitant]

REACTIONS (1)
  - DEATH [None]
